FAERS Safety Report 8271356-7 (Version None)
Quarter: 2012Q2

REPORT INFORMATION
  Report Type: 
  Country: None (occurrence: None)
  Receive Date: 20120410
  Receipt Date: 20120119
  Transmission Date: 20120825
  Serious: No
  Sender: FDA-Public Use
  Company Number: US-NOVEN-12US003950

PATIENT
  Sex: Female
  Weight: 59.864 kg

DRUGS (4)
  1. LYRICA [Concomitant]
     Indication: PRODUCT USED FOR UNKNOWN INDICATION
     Dosage: 150 MG, TID
     Route: 048
  2. AMRIX [Concomitant]
     Indication: MUSCLE RELAXANT THERAPY
     Dosage: 30 MG, UNK
     Route: 048
  3. FENTANYL CITRATE [Suspect]
     Indication: NECK PAIN
     Dosage: 50 UG/HR, QOD
     Route: 062
     Dates: start: 20110501
  4. VICODIN [Concomitant]
     Indication: PRODUCT USED FOR UNKNOWN INDICATION
     Dosage: 5/325
     Route: 048

REACTIONS (2)
  - DRUG WITHDRAWAL SYNDROME [None]
  - PRODUCT QUALITY ISSUE [None]
